FAERS Safety Report 11209369 (Version 1)
Quarter: 2015Q2

REPORT INFORMATION
  Report Type: Spontaneous
  Country: US (occurrence: US)
  Receive Date: 20150622
  Receipt Date: 20150622
  Transmission Date: 20150821
  Serious: Yes (Other)
  Sender: FDA-Public Use
  Company Number: US-TAKEDA-2012-00982

PATIENT
  Age: 42 Year
  Sex: Male

DRUGS (1)
  1. VELCADE [Suspect]
     Active Substance: BORTEZOMIB
     Indication: PLASMA CELL MYELOMA

REACTIONS (4)
  - Gait disturbance [Unknown]
  - Productive cough [Unknown]
  - Pruritus [None]
  - Fatigue [Unknown]

NARRATIVE: CASE EVENT DATE: 20101222
